FAERS Safety Report 4789069-2 (Version None)
Quarter: 2005Q4

REPORT INFORMATION
  Report Type: 
  Country: None (occurrence: None)
  Receive Date: 20051005
  Receipt Date: 20050718
  Transmission Date: 20060501
  Serious: Yes (Death, Hospitalization)
  Sender: FDA-Public Use
  Company Number: US-MERCK-0507USA03000

PATIENT
  Age: 69 Year
  Sex: Male
  Weight: 85 kg

DRUGS (4)
  1. VIOXX [Suspect]
     Route: 048
     Dates: start: 20010515
  2. VIOXX [Suspect]
     Route: 048
     Dates: start: 20011203, end: 20030928
  3. ZYRTEC [Concomitant]
     Route: 065
  4. NASAREL [Concomitant]
     Route: 065

REACTIONS (2)
  - BACK DISORDER [None]
  - MYOCARDIAL INFARCTION [None]
